FAERS Safety Report 7029939-8 (Version None)
Quarter: 2010Q3

REPORT INFORMATION
  Report Type: 
  Country: None (occurrence: None)
  Receive Date: 20100929
  Receipt Date: 20100726
  Transmission Date: 20110219
  Serious: Yes (Death)
  Sender: FDA-Public Use
  Company Number: 006121

PATIENT
  Age: 44 Year
  Sex: Female
  Weight: 49.8 kg

DRUGS (14)
  1. KEPPRA [Suspect]
     Indication: MYOCLONIC EPILEPSY
     Dosage: SEE IMAGE
     Route: 042
     Dates: start: 20100107, end: 20100112
  2. KEPPRA [Suspect]
     Indication: MYOCLONIC EPILEPSY
     Dosage: SEE IMAGE
     Route: 042
     Dates: start: 20100113, end: 20100115
  3. KEPPRA [Suspect]
     Indication: MYOCLONIC EPILEPSY
     Dosage: SEE IMAGE
     Route: 042
     Dates: start: 20100115, end: 20100115
  4. KEPPRA [Suspect]
     Indication: MYOCLONIC EPILEPSY
     Dosage: SEE IMAGE
     Route: 042
     Dates: start: 20100116, end: 20100117
  5. KEPPRA [Suspect]
     Indication: MYOCLONIC EPILEPSY
     Dosage: SEE IMAGE
     Route: 042
     Dates: start: 20100107
  6. CALCITRIOL [Concomitant]
  7. EPOGEN [Concomitant]
  8. LEVOTHYROXINE [Concomitant]
  9. INSULIN [Concomitant]
  10. LISINOPRIL [Concomitant]
  11. MINOXIDIL [Concomitant]
  12. ASPIRIN [Concomitant]
  13. DILAUDID [Concomitant]
  14. LORTAB [Concomitant]

REACTIONS (5)
  - AGGRESSION [None]
  - AGITATION [None]
  - COMPLETED SUICIDE [None]
  - HALLUCINATION [None]
  - MYOCLONIC EPILEPSY [None]
